FAERS Safety Report 7039658-X (Version None)
Quarter: 2010Q4

REPORT INFORMATION
  Report Type: 
  Country: None (occurrence: None)
  Receive Date: 20101012
  Receipt Date: 20100915
  Transmission Date: 20110411
  Serious: Yes (Other)
  Sender: FDA-Public Use
  Company Number: B0674951A

PATIENT

DRUGS (2)
  1. LAPATINIB DITOSYLATE [Suspect]
     Route: 048
  2. CAPECITABINE [Concomitant]

REACTIONS (1)
  - RETROPERITONEAL FIBROSIS [None]
